FAERS Safety Report 14163603 (Version 1)
Quarter: 2017Q4

REPORT INFORMATION
  Report Type: Spontaneous
  Country: JP (occurrence: JP)
  Receive Date: 20171107
  Receipt Date: 20171107
  Transmission Date: 20180321
  Serious: Yes (Hospitalization, Other)
  Sender: FDA-Public Use
  Company Number: JP-ACCORD-060651

PATIENT
  Age: 75 Year
  Sex: Female
  Weight: 49 kg

DRUGS (12)
  1. CLOPIDOGREL [Suspect]
     Active Substance: CLOPIDOGREL BISULFATE
     Dosage: IN THE MORNING OF THE DAY OF SURGERY
     Route: 048
  2. PHENYLEPHRINE [Concomitant]
     Active Substance: PHENYLEPHRINE\PHENYLEPHRINE HYDROCHLORIDE
     Dosage: CONTINUOUS INFUSION: 0.4-0.5 MG/H
  3. FENTANYL. [Concomitant]
     Active Substance: FENTANYL
     Dosage: 10 MIN BEFORE SURGERY COMPLETION
  4. ROCURONIUM/ROCURONIUM BROMIDE [Concomitant]
     Indication: GENERAL ANAESTHESIA
  5. PROPOFOL. [Concomitant]
     Active Substance: PROPOFOL
     Indication: GENERAL ANAESTHESIA
     Dosage: 0.5 MCG/KG/MIN, TARGET-CONTROLLED INFUSION
  6. ACETYLSALICYLIC ACID [Suspect]
     Active Substance: ASPIRIN
     Indication: PRODUCT USED FOR UNKNOWN INDICATION
     Dosage: THE DAY BEFORE SURGERY
     Route: 048
  7. HEPARIN [Suspect]
     Active Substance: HEPARIN SODIUM
     Indication: PRODUCT USED FOR UNKNOWN INDICATION
     Dosage: AT THE BEGINNING OF SURGERY
     Route: 042
  8. REMIFENTANIL/REMIFENTANIL HYDROCHLORIDE [Concomitant]
     Indication: GENERAL ANAESTHESIA
     Dosage: 0.5 MCG/KG/MIN, TARGET-CONTROLLED INFUSION
  9. PROPOFOL. [Concomitant]
     Active Substance: PROPOFOL
     Dosage: 0.1 MCG/KG/MIN TARGET-CONTROLLED INFUSION
  10. CLOPIDOGREL [Suspect]
     Active Substance: CLOPIDOGREL BISULFATE
     Indication: PRODUCT USED FOR UNKNOWN INDICATION
     Dosage: ORALLY ON THE DAY BEFORE
     Route: 048
  11. ARGATROBAN. [Suspect]
     Active Substance: ARGATROBAN
     Indication: PRODUCT USED FOR UNKNOWN INDICATION
     Dosage: 0.8 MCG/KG/MIN,
  12. OXYGEN. [Concomitant]
     Active Substance: OXYGEN
     Dosage: INHALATIONAL OXYGEN CONCENTRATION OF 37%
     Route: 055

REACTIONS (2)
  - Shock haemorrhagic [Recovering/Resolving]
  - Oesophageal intramural haematoma [Recovering/Resolving]
